FAERS Safety Report 12283729 (Version 1)
Quarter: 2016Q2

REPORT INFORMATION
  Report Type: Spontaneous
  Country: US (occurrence: US)
  Receive Date: 20160419
  Receipt Date: 20160419
  Transmission Date: 20160815
  Serious: No
  Sender: FDA-Public Use
  Company Number: US-BANPHARM-20154364

PATIENT
  Age: 62 Year
  Sex: Male
  Weight: 92.08 kg

DRUGS (2)
  1. BAYER ASPIRIN [Suspect]
     Active Substance: ASPIRIN
     Indication: NASOPHARYNGITIS
     Dosage: 1 DF, PRN,
     Route: 048
  2. ALEVE [Suspect]
     Active Substance: NAPROXEN SODIUM
     Indication: PAIN
     Dosage: 1 DF, Q12H,
     Route: 048
     Dates: start: 20151023, end: 20151026

REACTIONS (2)
  - Drug ineffective [Unknown]
  - Epistaxis [Unknown]
